FAERS Safety Report 5414106-1 (Version None)
Quarter: 2007Q3

REPORT INFORMATION
  Report Type: 
  Country: None (occurrence: None)
  Receive Date: 20070814
  Receipt Date: 20070807
  Transmission Date: 20080115
  Serious: Yes (Other)
  Sender: FDA-Public Use
  Company Number: US-PFIZER INC-2007065192

PATIENT
  Sex: Male
  Weight: 158.8 kg

DRUGS (1)
  1. ZOLOFT [Suspect]
     Indication: DEPRESSION
     Dates: start: 20050101, end: 20070701

REACTIONS (3)
  - DRUG INEFFECTIVE [None]
  - EPILEPSY [None]
  - NAUSEA [None]
